FAERS Safety Report 25260559 (Version 1)
Quarter: 2025Q2

REPORT INFORMATION
  Report Type: Spontaneous
  Country: EE (occurrence: EE)
  Receive Date: 20250501
  Receipt Date: 20250501
  Transmission Date: 20250717
  Serious: Yes (Hospitalization)
  Sender: NOVO NORDISK
  Company Number: EE-NOVOPROD-1404621

PATIENT
  Age: 55 Year
  Sex: Male

DRUGS (1)
  1. OZEMPIC [Suspect]
     Active Substance: SEMAGLUTIDE
     Indication: Product used for unknown indication
     Dosage: 1 MG, QW
     Route: 058
     Dates: start: 2022

REACTIONS (3)
  - Glomerular filtration rate decreased [Unknown]
  - Hypotension [Unknown]
  - Weight decreased [Unknown]

NARRATIVE: CASE EVENT DATE: 20250301
